FAERS Safety Report 4981740-2 (Version None)
Quarter: 2006Q2

REPORT INFORMATION
  Report Type: 
  Country: None (occurrence: None)
  Receive Date: 20060420
  Receipt Date: 20060420
  Transmission Date: 20061013
  Serious: Yes (Other)
  Sender: FDA-Public Use
  Company Number: None

PATIENT
  Sex: Female
  Weight: 65.7716 kg

DRUGS (1)
  1. PAXIL CR [Suspect]
     Indication: DEPRESSION
     Dosage: 12.5    EVERY OTHER DAY  PO
     Route: 048
     Dates: start: 20000111, end: 20060419

REACTIONS (7)
  - ANGER [None]
  - DIZZINESS [None]
  - FORMICATION [None]
  - IRRITABILITY [None]
  - NAUSEA [None]
  - STOMACH DISCOMFORT [None]
  - VERTIGO [None]
